FAERS Safety Report 5158098-1 (Version None)
Quarter: 2006Q4

REPORT INFORMATION
  Report Type: 
  Country: None (occurrence: None)
  Receive Date: 20061117
  Receipt Date: 20061108
  Transmission Date: 20070319
  Serious: Yes (Other)
  Sender: FDA-Public Use
  Company Number: 2006127607

PATIENT
  Sex: Female

DRUGS (7)
  1. HALCION [Suspect]
     Indication: INSOMNIA
     Dosage: ORAL
     Route: 048
  2. ADALAT [Suspect]
     Indication: HYPERTENSION
     Dosage: ORAL
     Route: 048
  3. ANTIHYPERTENSIVES (ANTIHYPERTENSIVES) [Concomitant]
  4. SELBEX (TEPRENONE) [Concomitant]
  5. FAMOTIDINE [Concomitant]
  6. HYOSCINE HBR HYT [Concomitant]
  7. ALL OTHER THERAPEUTIC PRODUCTS (ALL OTHER THERAPEUTIC PRODUCTS) [Concomitant]

REACTIONS (2)
  - ABDOMINAL PAIN UPPER [None]
  - GINGIVAL PAIN [None]
